FAERS Safety Report 16638830 (Version 1)
Quarter: 2019Q3

REPORT INFORMATION
  Report Type: Spontaneous
  Country: GB (occurrence: GB)
  Receive Date: 20190726
  Receipt Date: 20190726
  Transmission Date: 20191004
  Serious: Yes (Other)
  Sender: FDA-Public Use
  Company Number: GB-TEVA-2019-GB-1083687

PATIENT
  Age: 76 Year
  Sex: Female
  Weight: 106 kg

DRUGS (21)
  1. NITROFURANTOIN. [Suspect]
     Active Substance: NITROFURANTOIN
     Dosage: 200MG PER DAY
     Route: 002
     Dates: start: 20181207, end: 20181214
  2. FERROUS FUMARATE [Concomitant]
     Active Substance: FERROUS FUMARATE
     Dosage: 1DOSAGE FORMS PER DAY
     Dates: start: 20130313
  3. BISOPROLOL [Concomitant]
     Active Substance: BISOPROLOL
     Dosage: 1DOSAGE FORMS PER DAY
     Dates: start: 20180416
  4. LANSOPRAZOLE. [Concomitant]
     Active Substance: LANSOPRAZOLE
     Dosage: 1DOSAGE FORMS PER DAY
     Dates: start: 20180416
  5. CODEINE PHOSPHATE [Concomitant]
     Active Substance: CODEINE PHOSPHATE
     Dosage: 4DOSAGE FORMS PER DAY
     Dates: start: 20181105
  6. FENBID [Concomitant]
     Active Substance: IBUPROFEN
     Dosage: 3DOSAGE FORMS PER DAY
     Dates: start: 20180813
  7. DUORESP SPIROMAX [Concomitant]
     Active Substance: BUDESONIDE\FORMOTEROL
     Dosage: ONE PUFF TWICE A DAY AS DIRECTED, 2DOSAGE FORMS PER DAY
     Dates: start: 20180212
  8. PARACETAMOL [Concomitant]
     Active Substance: ACETAMINOPHEN
     Dosage: 1 OR 2, 4 TIMES/DAY
     Dates: start: 20180917, end: 20180929
  9. BECLOMETASONE [Concomitant]
     Active Substance: BECLOMETHASONE DIPROPIONATE
     Dosage: PUFFS
     Dates: start: 20180813
  10. LOSARTAN. [Concomitant]
     Active Substance: LOSARTAN
     Dosage: 1 DOSAGE FORM PER DAY
     Dates: start: 20180416
  11. ADCAL [Concomitant]
     Dosage: 4DOSAGE FORMS PER DAY
     Dates: start: 20160126
  12. LAXIDO [Concomitant]
     Active Substance: POLYETHYLENE GLYCOL 3350\POTASSIUM CHLORIDE\SODIUM BICARBONATE\SODIUM CHLORIDE
     Dosage: 3DOSAGE FORMS PER DAY
     Dates: start: 20181105
  13. CETIRIZINE [Concomitant]
     Active Substance: CETIRIZINE HYDROCHLORIDE
     Dosage: 1DOSAGE FORM PER DAY
     Dates: start: 20180813
  14. ACIDEX [Concomitant]
     Active Substance: CALCIUM CARBONATE\SODIUM ALGINATE\SODIUM BICARBONATE
     Dosage: 40ML PER DAY
     Dates: start: 20180813
  15. PREDNISOLONE. [Concomitant]
     Active Substance: PREDNISOLONE
     Dosage: 6 TO BE TAKEN EACH MORNING TOTAL 30MG
     Dates: start: 20181105, end: 20181105
  16. VENTOLIN [Concomitant]
     Active Substance: ALBUTEROL SULFATE
     Dates: start: 20180813
  17. FUROSEMIDE. [Concomitant]
     Active Substance: FUROSEMIDE
     Dosage: MORNING 1 DOSAGE FORMS PER DAY
     Dates: start: 20180514
  18. LACTULOSE. [Concomitant]
     Active Substance: LACTULOSE
     Dosage: 30ML PER DAY
     Dates: start: 20181001, end: 20181017
  19. EYE DROPS [Concomitant]
     Active Substance: UNSPECIFIED INGREDIENT
     Dosage: 1-2 DROPS 3 TIMES/DAY IN BOTH EYES
     Dates: start: 20170731
  20. GABAPENTIN. [Concomitant]
     Active Substance: GABAPENTIN
     Dosage: TAKE ONE CAPSULE THREE TIMES DAILY
     Dates: start: 20181031
  21. DOXAZOSIN [Concomitant]
     Active Substance: DOXAZOSIN MESYLATE
     Dosage: 1DOSAGE FORMS PER DAY
     Dates: start: 20180713

REACTIONS (1)
  - Oedema peripheral [Not Recovered/Not Resolved]

NARRATIVE: CASE EVENT DATE: 20181210
